FAERS Safety Report 12942911 (Version 4)
Quarter: 2017Q4

REPORT INFORMATION
  Report Type: Spontaneous
  Country: CO (occurrence: CO)
  Receive Date: 20161114
  Receipt Date: 20171207
  Transmission Date: 20180320
  Serious: Yes (Hospitalization, Other)
  Sender: FDA-Public Use
  Company Number: CO-AMGEN-COLSP2016159265

PATIENT
  Age: 46 Year
  Sex: Female

DRUGS (3)
  1. ISONIAZID. [Suspect]
     Active Substance: ISONIAZID
     Indication: PRODUCT USED FOR UNKNOWN INDICATION
     Dosage: UNK
     Route: 065
     Dates: start: 201607
  2. ENBREL [Suspect]
     Active Substance: ETANERCEPT
     Dosage: 50 MG, WEEKLY
     Route: 058
     Dates: start: 2014
  3. ENBREL [Suspect]
     Active Substance: ETANERCEPT
     Indication: RHEUMATOID ARTHRITIS
     Dosage: 50 MG, WEEKLY
     Route: 058
     Dates: start: 2013

REACTIONS (10)
  - Liver disorder [Recovered/Resolved]
  - Vomiting [Recovered/Resolved]
  - Lung infection [Unknown]
  - Transaminases increased [Recovered/Resolved]
  - Cholecystitis [Unknown]
  - Hepatitis [Recovered/Resolved]
  - Tuberculosis [Recovered/Resolved]
  - Viral infection [Recovered/Resolved]
  - Blood bilirubin increased [Unknown]
  - Yellow skin [Recovered/Resolved]

NARRATIVE: CASE EVENT DATE: 2016
